FAERS Safety Report 20542293 (Version 1)
Quarter: 2022Q1

REPORT INFORMATION
  Report Type: Spontaneous
  Country: GB (occurrence: GB)
  Receive Date: 20220302
  Receipt Date: 20220302
  Transmission Date: 20220423
  Serious: Yes (Hospitalization)
  Sender: FDA-Public Use
  Company Number: GB-MYLANLABS-2022M1016472

PATIENT
  Age: 84 Year
  Sex: Female

DRUGS (4)
  1. CIPROFLOXACIN [Suspect]
     Active Substance: CIPROFLOXACIN
     Indication: Actinomycotic abdominal infection
     Dosage: UNK
     Route: 048
     Dates: start: 202103
  2. CIPROFLOXACIN [Suspect]
     Active Substance: CIPROFLOXACIN
     Indication: Peritonitis bacterial
  3. VANCOMYCIN [Suspect]
     Active Substance: VANCOMYCIN
     Indication: Actinomycotic abdominal infection
     Dosage: UNK
     Route: 033
     Dates: start: 202103
  4. VANCOMYCIN [Suspect]
     Active Substance: VANCOMYCIN
     Indication: Peritonitis bacterial

REACTIONS (1)
  - Treatment failure [Unknown]

NARRATIVE: CASE EVENT DATE: 20210301
